FAERS Safety Report 4401094-X (Version None)
Quarter: 2004Q3

REPORT INFORMATION
  Report Type: 
  Country: None (occurrence: None)
  Receive Date: 20040907
  Receipt Date: 20031029
  Transmission Date: 20050211
  Serious: No
  Sender: FDA-Public Use
  Company Number: US-BRISTOL-MYERS SQUIBB COMPANY-12421277

PATIENT
  Age: 57 Year
  Sex: Male

DRUGS (6)
  1. COUMADIN [Suspect]
     Indication: HEART VALVE REPLACEMENT
     Route: 048
  2. VITAMIN K TAB [Concomitant]
     Route: 042
     Dates: start: 20031003
  3. HEPARIN [Concomitant]
     Dates: start: 20031001
  4. LIPITOR [Concomitant]
  5. ALTACE [Concomitant]
  6. TOPROL-XL [Concomitant]

REACTIONS (2)
  - INTERNATIONAL NORMALISED RATIO ABNORMAL [None]
  - POST PROCEDURAL COMPLICATION [None]
